FAERS Safety Report 23754508 (Version 2)
Quarter: 2025Q4

REPORT INFORMATION
  Report Type: Report from Study
  Country: EU (occurrence: EU)
  Receive Date: 20240418
  Receipt Date: 20251223
  Transmission Date: 20260117
  Serious: Yes (Life-Threatening)
  Sender: TEVA
  Company Number: EU-TEVA-VS-3184071

PATIENT

DRUGS (1)
  1. SUNITINIB [Suspect]
     Active Substance: SUNITINIB
     Indication: Metastatic renal cell carcinoma
     Route: 065

REACTIONS (2)
  - Haemorrhoids [Unknown]
  - Anal haemorrhage [Unknown]
